FAERS Safety Report 6971557-1 (Version None)
Quarter: 2010Q3

REPORT INFORMATION
  Report Type: 
  Country: None (occurrence: None)
  Receive Date: 20100908
  Receipt Date: 20100827
  Transmission Date: 20110219
  Serious: No
  Sender: FDA-Public Use
  Company Number: JP-PFIZER INC-2010092725

PATIENT
  Sex: Female

DRUGS (4)
  1. AZULFIDINE [Suspect]
     Indication: RHEUMATOID ARTHRITIS
     Dosage: 1000 MG, PER DAY
     Route: 048
     Dates: start: 20090926, end: 20100827
  2. BASEN [Concomitant]
     Dosage: 0.6 MG, 3X/DAY
     Route: 048
  3. LIDUC M [Concomitant]
     Indication: HYPERLIPIDAEMIA
     Dosage: 10 MG, 1X/DAY
     Route: 048
  4. LOXONIN [Concomitant]
     Dosage: UNK
     Route: 048

REACTIONS (1)
  - HEPATIC FUNCTION ABNORMAL [None]
